FAERS Safety Report 7823385-2 (Version None)
Quarter: 2011Q4

REPORT INFORMATION
  Report Type: 
  Country: None (occurrence: None)
  Receive Date: 20111014
  Receipt Date: 20111003
  Transmission Date: 20120403
  Serious: Yes (Other)
  Sender: FDA-Public Use
  Company Number: 1000024443

PATIENT
  Sex: Female
  Weight: 63.5 kg

DRUGS (3)
  1. SAVELLA [Suspect]
     Indication: PAIN
     Dates: start: 20110209, end: 20110218
  2. SAVELLA [Suspect]
     Indication: FIBROMYALGIA
     Dates: start: 20110209, end: 20110218
  3. RYZOLT (TRAMADOL HYDROCHLORIDE) (TRAMADOL HYDROCHLORIDE) [Concomitant]

REACTIONS (1)
  - HYPOAESTHESIA ORAL [None]
